FAERS Safety Report 11467343 (Version 4)
Quarter: 2016Q4

REPORT INFORMATION
  Report Type: Report from Study
  Country: US (occurrence: US)
  Receive Date: 20150908
  Receipt Date: 20161020
  Transmission Date: 20170206
  Serious: No
  Sender: FDA-Public Use
  Company Number: PHEH2015US010429

PATIENT
  Age: 24 Year
  Sex: Female

DRUGS (6)
  1. AFINITOR [Suspect]
     Active Substance: EVEROLIMUS
     Dosage: UNK
     Route: 065
     Dates: start: 20160929
  2. ACETAMINOPHEN. [Concomitant]
     Active Substance: ACETAMINOPHEN
     Indication: PRODUCT USED FOR UNKNOWN INDICATION
     Route: 065
  3. CELEXA [Concomitant]
     Active Substance: CITALOPRAM HYDROBROMIDE
     Indication: PRODUCT USED FOR UNKNOWN INDICATION
     Route: 065
  4. TYLENOL [Concomitant]
     Active Substance: ACETAMINOPHEN
     Indication: PRODUCT USED FOR UNKNOWN INDICATION
     Route: 065
  5. LAMOTRIGINE. [Concomitant]
     Active Substance: LAMOTRIGINE
     Indication: PRODUCT USED FOR UNKNOWN INDICATION
     Route: 065
  6. AFINITOR [Suspect]
     Active Substance: EVEROLIMUS
     Indication: ANGIOMYOLIPOMA
     Dosage: 5 MG, QD
     Route: 048
     Dates: start: 20150527

REACTIONS (9)
  - Renal pain [Unknown]
  - Dizziness [Not Recovered/Not Resolved]
  - Back pain [Unknown]
  - Insomnia [Not Recovered/Not Resolved]
  - Kidney enlargement [Not Recovered/Not Resolved]
  - Fatigue [Not Recovered/Not Resolved]
  - Fall [Unknown]
  - Panic attack [Unknown]
  - Chest pain [Unknown]

NARRATIVE: CASE EVENT DATE: 20150528
